FAERS Safety Report 5413414-8 (Version None)
Quarter: 2007Q3

REPORT INFORMATION
  Report Type: 
  Country: None (occurrence: None)
  Receive Date: 20070810
  Receipt Date: 20070725
  Transmission Date: 20080115
  Serious: Yes (Hospitalization)
  Sender: FDA-Public Use
  Company Number: DSA_30325_2007

PATIENT
  Sex: Female

DRUGS (11)
  1. TEMESTA (TEMESTA - LORAZEPAM) (NOT SPECIFIED) [Suspect]
     Indication: SCHIZOPHRENIA, UNDIFFERENTIATED TYPE
     Dates: start: 20060130, end: 20060217
  2. TEMESTA (TEMESTA - LORAZEPAM) (NOT SPECIFIED) [Suspect]
     Indication: SCHIZOPHRENIA, UNDIFFERENTIATED TYPE
     Dates: start: 20060218, end: 20060301
  3. TEMESTA (TEMESTA - LORAZEPAM) (NOT SPECIFIED) [Suspect]
     Indication: SCHIZOPHRENIA, UNDIFFERENTIATED TYPE
     Dates: start: 20051109
  4. TEMESTA (TEMESTA - LORAZEPAM) (NOT SPECIFIED) [Suspect]
     Indication: SCHIZOPHRENIA, UNDIFFERENTIATED TYPE
     Dates: start: 20060302
  5. MIRTAZAPINE [Suspect]
     Dates: start: 20060102, end: 20060208
  6. MOVICOL [Concomitant]
  7. TRITTICO [Concomitant]
  8. LEGALON [Concomitant]
  9. GEWACALM [Concomitant]
  10. DEPAKENE [Concomitant]
  11. RISPERDAL [Concomitant]

REACTIONS (2)
  - HEPATIC STEATOSIS [None]
  - HYPERLIPIDAEMIA [None]
